FAERS Safety Report 10743496 (Version 1)
Quarter: 2015Q1

REPORT INFORMATION
  Report Type: Spontaneous
  Country: CN (occurrence: CN)
  Receive Date: 20150128
  Receipt Date: 20150128
  Transmission Date: 20150721
  Serious: Yes (Life-Threatening, Hospitalization, Disabling)
  Sender: FDA-Public Use
  Company Number: CN-ROCHE-1526048

PATIENT
  Age: 77 Year
  Sex: Female

DRUGS (2)
  1. ROCEPHIN [Suspect]
     Active Substance: CEFTRIAXONE SODIUM
     Indication: PAIN IN EXTREMITY
  2. ROCEPHIN [Suspect]
     Active Substance: CEFTRIAXONE SODIUM
     Indication: PERIPHERAL SWELLING
     Route: 041
     Dates: start: 20091228

REACTIONS (3)
  - Sudden hearing loss [Not Recovered/Not Resolved]
  - Off label use [Unknown]
  - Hypersensitivity [Recovering/Resolving]
